FAERS Safety Report 9444220 (Version 1)
Quarter: 2013Q3

REPORT INFORMATION
  Report Type: Spontaneous
  Country: US (occurrence: None)
  Receive Date: 20130806
  Receipt Date: 20130806
  Transmission Date: 20140515
  Serious: Yes (Hospitalization, Disabling)
  Sender: FDA-Public Use
  Company Number: None

PATIENT
  Age: 85 Year
  Sex: Female
  Weight: 73.48 kg

DRUGS (1)
  1. BETAMETHASONE [Suspect]
     Indication: BURSITIS
     Dates: start: 20090505

REACTIONS (3)
  - Anxiety [None]
  - Gait disturbance [None]
  - Impaired driving ability [None]
